FAERS Safety Report 8276107-8 (Version None)
Quarter: 2012Q2

REPORT INFORMATION
  Report Type: 
  Country: None (occurrence: None)
  Receive Date: 20120406
  Receipt Date: 20120326
  Transmission Date: 20120825
  Serious: Yes (Hospitalization)
  Sender: FDA-Public Use
  Company Number: WAES 1203USA01712

PATIENT
  Age: 47 Year
  Sex: Female

DRUGS (5)
  1. ETRAVIRINE UNK [Suspect]
     Indication: HIV INFECTION
     Dates: start: 20120106, end: 20120205
  2. RITONAVIR [Suspect]
     Indication: HIV INFECTION
     Dates: start: 20120119, end: 20120205
  3. DARUNAVIR UNK [Suspect]
     Indication: HIV INFECTION
     Dates: start: 20120119, end: 20120205
  4. TAB RALTEGRAVIR POTASSIUM UNK [Suspect]
     Indication: HIV INFECTION
     Dosage: 400 MG/BID/PO
     Route: 048
     Dates: start: 20120106, end: 20120205
  5. BLINDED THERAPY UNK [Suspect]
     Indication: HIV INFECTION
     Dosage: PO
     Route: 048

REACTIONS (2)
  - RASH PRURITIC [None]
  - RASH MACULO-PAPULAR [None]
